FAERS Safety Report 9054508 (Version 1)
Quarter: 2013Q1

REPORT INFORMATION
  Report Type: Spontaneous
  Country: US (occurrence: US)
  Receive Date: 20130208
  Receipt Date: 20130208
  Transmission Date: 20140127
  Serious: Yes (Hospitalization)
  Sender: FDA-Public Use
  Company Number: US-GLAXOSMITHKLINE-A0998645A

PATIENT
  Age: 53 Year
  Sex: Male
  Weight: 104.5 kg

DRUGS (4)
  1. PAXIL [Suspect]
     Indication: DEPRESSION
     Dosage: 20MGD PER DAY
     Route: 048
     Dates: start: 1988, end: 2012
  2. METFORMIN [Concomitant]
     Indication: DIABETES MELLITUS
     Dosage: 500MG THREE TIMES PER DAY
  3. LISINOPRIL [Concomitant]
     Indication: HYPERTENSION
  4. PRISTIQ [Concomitant]
     Indication: DEPRESSION
     Dosage: 100MG PER DAY
     Dates: start: 201101

REACTIONS (3)
  - Suicidal ideation [Recovered/Resolved]
  - Depression [Recovered/Resolved]
  - Feeling jittery [Recovered/Resolved]
